FAERS Safety Report 12303855 (Version 2)
Quarter: 2016Q2

REPORT INFORMATION
  Report Type: Spontaneous
  Country: US (occurrence: US)
  Receive Date: 20160426
  Receipt Date: 20160528
  Transmission Date: 20160815
  Serious: Yes (Other)
  Sender: FDA-Public Use
  Company Number: US-JNJFOC-20160409908

PATIENT
  Age: 27 Year
  Sex: Male

DRUGS (7)
  1. HALOPERIDOL DECANOATE. [Suspect]
     Active Substance: HALOPERIDOL DECANOATE
     Indication: PRODUCT USED FOR UNKNOWN INDICATION
     Route: 065
  2. RISPERIDAL [Suspect]
     Active Substance: RISPERIDONE
     Indication: THINKING ABNORMAL
     Route: 048
     Dates: start: 19980101, end: 19981231
  3. RISPERIDAL [Suspect]
     Active Substance: RISPERIDONE
     Indication: PSYCHOTIC DISORDER
     Route: 048
     Dates: start: 19980101, end: 19981231
  4. HALDOL [Suspect]
     Active Substance: HALOPERIDOL
     Indication: PSYCHOTIC DISORDER
     Route: 048
  5. RISPERIDAL [Suspect]
     Active Substance: RISPERIDONE
     Indication: PSYCHOTIC DISORDER
     Route: 048
     Dates: start: 20000711, end: 20021027
  6. RISPERIDAL [Suspect]
     Active Substance: RISPERIDONE
     Indication: THINKING ABNORMAL
     Route: 048
     Dates: start: 20000711, end: 20021027
  7. HALDOL DECANOATE [Suspect]
     Active Substance: HALOPERIDOL DECANOATE
     Indication: PSYCHOTIC DISORDER
     Route: 030

REACTIONS (3)
  - Depressed mood [Unknown]
  - Trismus [Unknown]
  - Gynaecomastia [Unknown]

NARRATIVE: CASE EVENT DATE: 1999
